FAERS Safety Report 5006415-5 (Version None)
Quarter: 2006Q2

REPORT INFORMATION
  Report Type: 
  Country: None (occurrence: None)
  Receive Date: 20060516
  Receipt Date: 20060509
  Transmission Date: 20061013
  Serious: Yes (Other)
  Sender: FDA-Public Use
  Company Number: S06-USA-01817-01

PATIENT
  Sex: Female

DRUGS (1)
  1. LEXAPRO [Suspect]
     Dosage: 10 MG ONCE PO
     Route: 048

REACTIONS (1)
  - TARDIVE DYSKINESIA [None]
